FAERS Safety Report 9020262 (Version 1)
Quarter: 2013Q1

REPORT INFORMATION
  Report Type: Spontaneous
  Country: None (occurrence: US)
  Receive Date: 20130119
  Receipt Date: 20130119
  Transmission Date: 20140127
  Serious: No
  Sender: FDA-Public Use
  Company Number: US-ALLERGAN-1209425US

PATIENT
  Age: 33 Year
  Sex: Male

DRUGS (6)
  1. BOTOX COSMETIC [Suspect]
     Indication: SKIN WRINKLING
     Dosage: 36 UNITS, SINGLE
     Route: 030
     Dates: start: 20120702, end: 20120702
  2. BOTOX COSMETIC [Suspect]
     Indication: SKIN WRINKLING
  3. INSULIN PUMP [Concomitant]
     Indication: DIABETES MELLITUS
  4. PRAVACHOL [Concomitant]
     Indication: BLOOD CHOLESTEROL INCREASED
     Dosage: 40 MG, UNK
  5. COREG [Concomitant]
     Indication: CARDIAC DISORDER
     Dosage: 25 MG, BID
  6. ALTASE [Concomitant]
     Indication: PRODUCT USED FOR UNKNOWN INDICATION
     Dosage: 2.5 MG, UNK

REACTIONS (1)
  - Drug ineffective [Unknown]
